FAERS Safety Report 7970499-2 (Version None)
Quarter: 2011Q4

REPORT INFORMATION
  Report Type: 
  Country: None (occurrence: None)
  Receive Date: 20111212
  Receipt Date: 20110603
  Transmission Date: 20120403
  Serious: No
  Sender: FDA-Public Use
  Company Number: US-ABBOTT-11P-163-0730798-00

PATIENT
  Age: 68 Year
  Sex: Female

DRUGS (4)
  1. VICODIN [Suspect]
     Indication: SPINAL FUSION SURGERY
     Dosage: 3 TIMES DAILY AS NEEDED
     Route: 048
  2. UNKNOWN ANTI-DEPRESSANT MEDICATION [Concomitant]
     Indication: DEPRESSION
  3. UNKNOWN BIPOLAR MEDICATION [Concomitant]
     Indication: BIPOLAR DISORDER
  4. PERCOCET [Concomitant]
     Indication: BACK PAIN

REACTIONS (3)
  - SUICIDAL IDEATION [None]
  - FRUSTRATION [None]
  - MALAISE [None]
